FAERS Safety Report 25912480 (Version 1)
Quarter: 2025Q4

REPORT INFORMATION
  Report Type: Spontaneous
  Country: EU (occurrence: EU)
  Receive Date: 20251013
  Receipt Date: 20251013
  Transmission Date: 20260117
  Serious: Yes (Life-Threatening, Hospitalization, Other)
  Sender: CHEPLAPHARM
  Company Number: EU-ROCHE-10000401984

PATIENT
  Age: 26 Year
  Sex: Male

DRUGS (9)
  1. CLONAZEPAM [Suspect]
     Active Substance: CLONAZEPAM
     Indication: Suicide attempt
     Dates: start: 20250614
  2. VALIUM [Suspect]
     Active Substance: DIAZEPAM
     Indication: Suicide attempt
  3. CANNABIS SATIVA SUBSP. INDICA TOP [Suspect]
     Active Substance: CANNABIS SATIVA SUBSP. INDICA TOP
     Indication: Suicide attempt
  4. PREGABALIN [Suspect]
     Active Substance: PREGABALIN
     Indication: Suicide attempt
  5. MIRTAZAPINE [Suspect]
     Active Substance: MIRTAZAPINE
     Indication: Suicide attempt
  6. IMOVANE [Suspect]
     Active Substance: ZOPICLONE
     Indication: Suicide attempt
     Dosage: 10 IMOVANE TABLETS
     Route: 048
     Dates: start: 20250614
  7. OXAZEPAM [Suspect]
     Active Substance: OXAZEPAM
     Indication: Suicide attempt
     Dosage: INGESTED 15 SERESTA TABLETS
     Route: 048
     Dates: start: 20250614
  8. ESCITALOPRAM OXALATE [Concomitant]
     Active Substance: ESCITALOPRAM OXALATE
  9. ZOPICLONE [Concomitant]
     Active Substance: ZOPICLONE

REACTIONS (5)
  - Bradycardia [Recovered/Resolved]
  - Altered state of consciousness [Recovered/Resolved]
  - Suicide attempt [Recovered/Resolved]
  - Bundle branch block right [Unknown]
  - Drug use disorder [Unknown]

NARRATIVE: CASE EVENT DATE: 20250614
